FAERS Safety Report 15679223 (Version 1)
Quarter: 2018Q4

REPORT INFORMATION
  Report Type: Report from Study
  Country: US (occurrence: US)
  Receive Date: 20181203
  Receipt Date: 20181203
  Transmission Date: 20190205
  Serious: No
  Sender: FDA-Public Use
  Company Number: US-IPSEN BIOPHARMACEUTICALS, INC.-2018-16024

PATIENT
  Sex: Male
  Weight: 26.1 kg

DRUGS (2)
  1. INCRELEX [Suspect]
     Active Substance: MECASERMIN
     Indication: BODY HEIGHT BELOW NORMAL
     Dosage: 00.61 MG/KG (40 MG, ONE DOSE 10 PER MONTH
     Route: 058
     Dates: start: 20170405
  2. INCRELEX [Suspect]
     Active Substance: MECASERMIN
     Indication: OFF LABEL USE

REACTIONS (4)
  - Injection site pain [Unknown]
  - Product administration interrupted [Unknown]
  - Off label use [Unknown]
  - Intentional product use issue [Unknown]
